FAERS Safety Report 18222918 (Version 1)
Quarter: 2020Q3

REPORT INFORMATION
  Report Type: Spontaneous
  Country: FR (occurrence: FR)
  Receive Date: 20200902
  Receipt Date: 20200902
  Transmission Date: 20201103
  Serious: Yes (Other)
  Sender: FDA-Public Use
  Company Number: FR-TEVA-2020-FR-1821829

PATIENT
  Age: 68 Year
  Sex: Female

DRUGS (12)
  1. SIMVASTATINE [Concomitant]
     Active Substance: SIMVASTATIN
  2. KARDEGIC [Concomitant]
     Active Substance: ASPIRIN DL-LYSINE
  3. DOLIPRANE [Concomitant]
     Active Substance: ACETAMINOPHEN
  4. STRESAM [Concomitant]
     Active Substance: ETIFOXINE
  5. UVEDOSE [Concomitant]
     Active Substance: CHOLECALCIFEROL
  6. SMECTA [Concomitant]
     Active Substance: MONTMORILLONITE
  7. GABAPENTIN. [Suspect]
     Active Substance: GABAPENTIN
     Indication: NEURALGIA
     Dosage: 300MG
     Route: 048
     Dates: start: 202006, end: 202006
  8. IMOVANE [Concomitant]
     Active Substance: ZOPICLONE
  9. INEXIUM [Concomitant]
     Active Substance: ESOMEPRAZOLE
  10. GAVISCON [Concomitant]
     Active Substance: ALUMINUM HYDROXIDE\MAGNESIUM CARBONATE
  11. DEBRIDAT [Concomitant]
     Active Substance: TRIMEBUTINE MALEATE
  12. L THYROXIN HENNING [Concomitant]
     Active Substance: LEVOTHYROXINE SODIUM

REACTIONS (3)
  - Vertigo [Recovered/Resolved]
  - Abdominal pain [Recovered/Resolved]
  - Vomiting [Recovered/Resolved]

NARRATIVE: CASE EVENT DATE: 202006
